FAERS Safety Report 20638551 (Version 1)
Quarter: 2022Q1

REPORT INFORMATION
  Report Type: Spontaneous
  Country: CN (occurrence: CN)
  Receive Date: 20220325
  Receipt Date: 20220325
  Transmission Date: 20220423
  Serious: Yes (Hospitalization, Other)
  Sender: FDA-Public Use
  Company Number: CN-PFIZER INC-202200440878

PATIENT
  Age: 34 Year
  Sex: Female
  Weight: 50 kg

DRUGS (2)
  1. METHOTREXATE [Suspect]
     Active Substance: METHOTREXATE
     Indication: Therapeutic procedure
     Dosage: 70 UG, 1X/DAY
     Route: 030
     Dates: start: 20220310, end: 20220310
  2. MIFEPRISTONE [Concomitant]
     Active Substance: MIFEPRISTONE
     Indication: Therapeutic procedure
     Dosage: 75.000 UG, 2X/DAY
     Route: 048
     Dates: start: 20220310, end: 20220310

REACTIONS (3)
  - Hepatic function abnormal [Recovering/Resolving]
  - Pain in extremity [Unknown]
  - Off label use [Unknown]

NARRATIVE: CASE EVENT DATE: 20220301
